FAERS Safety Report 19972101 (Version 1)
Quarter: 2021Q4

REPORT INFORMATION
  Report Type: Spontaneous
  Country: GB (occurrence: GB)
  Receive Date: 20211020
  Receipt Date: 20211020
  Transmission Date: 20220304
  Serious: Yes (Hospitalization, Other)
  Sender: FDA-Public Use
  Company Number: GB-MLMSERVICE-20211004-3094512-1

PATIENT
  Sex: Female

DRUGS (2)
  1. SERTRALINE [Suspect]
     Active Substance: SERTRALINE HYDROCHLORIDE
     Indication: Panic attack
  2. IMMUNOGLOBULIN [Concomitant]
     Indication: Infection
     Route: 058

REACTIONS (10)
  - Withdrawal syndrome [Recovering/Resolving]
  - Depression [Not Recovered/Not Resolved]
  - Abdominal distension [Not Recovered/Not Resolved]
  - Constipation [Not Recovered/Not Resolved]
  - Mental impairment [Recovering/Resolving]
  - Faecaloma [Unknown]
  - Panic attack [Unknown]
  - Lacrimation increased [Unknown]
  - Anxiety [Unknown]
  - Condition aggravated [Unknown]
